FAERS Safety Report 17799635 (Version 6)
Quarter: 2022Q4

REPORT INFORMATION
  Report Type: Report from Study
  Country: CO (occurrence: CO)
  Receive Date: 20200518
  Receipt Date: 20221031
  Transmission Date: 20230112
  Serious: Yes (Other)
  Sender: FDA-Public Use
  Company Number: NVSC2020CO052266

PATIENT
  Age: 45 Year
  Sex: Female

DRUGS (3)
  1. TASIGNA [Suspect]
     Active Substance: NILOTINIB
     Indication: Chronic myeloid leukaemia
     Dosage: 400 MG, Q12H
     Route: 048
     Dates: start: 2012
  2. TASIGNA [Suspect]
     Active Substance: NILOTINIB
     Dosage: 300 MG, Q12H (BY MOUTH)
     Route: 048
     Dates: start: 20120413
  3. TASIGNA [Suspect]
     Active Substance: NILOTINIB
     Dosage: 300 MG, Q12H
     Route: 048
     Dates: start: 20120413, end: 20210228

REACTIONS (13)
  - Glaucoma [Unknown]
  - Deafness bilateral [Unknown]
  - Haemoglobin decreased [Unknown]
  - Blindness [Unknown]
  - Leukaemia [Unknown]
  - Excessive cerumen production [Unknown]
  - Ear infection [Unknown]
  - Ear pain [Unknown]
  - Pain [Unknown]
  - Discomfort [Unknown]
  - Dizziness [Unknown]
  - Product dose omission issue [Unknown]
  - Product availability issue [Unknown]

NARRATIVE: CASE EVENT DATE: 20191201
